FAERS Safety Report 24015601 (Version 1)
Quarter: 2024Q2

REPORT INFORMATION
  Report Type: Spontaneous
  Country: US (occurrence: US)
  Receive Date: 20240626
  Receipt Date: 20240626
  Transmission Date: 20240716
  Serious: No
  Sender: FDA-Public Use
  Company Number: US-002147023-NVSC2024US133329

PATIENT
  Age: 76 Year
  Sex: Female
  Weight: 48.53 kg

DRUGS (1)
  1. LEQVIO [Suspect]
     Active Substance: INCLISIRAN SODIUM
     Indication: Low density lipoprotein increased
     Dosage: 284 MG, OTHER (MONTH 1. MONTH 3. AND EVERY 6 MONTHS MOVING FORWARD AFTER INITIAL TWO DOSES AT 30 DAY
     Route: 058
     Dates: start: 20230705, end: 20230730

REACTIONS (2)
  - Abdominal pain upper [Recovering/Resolving]
  - Muscle spasms [Recovering/Resolving]

NARRATIVE: CASE EVENT DATE: 20230705
